FAERS Safety Report 26032785 (Version 2)
Quarter: 2025Q4

REPORT INFORMATION
  Report Type: Report from Study
  Country: AR (occurrence: AR)
  Receive Date: 20251112
  Receipt Date: 20251120
  Transmission Date: 20260117
  Serious: Yes (Other)
  Sender: TAKEDA
  Company Number: AR-TAKEDA-2025TUS099033

PATIENT
  Age: 26 Year
  Sex: Female

DRUGS (1)
  1. HUMAN IMMUNOGLOBULIN G\HYALURONIDASE RECOMBINANT HUMAN [Suspect]
     Active Substance: HUMAN IMMUNOGLOBULIN G\HYALURONIDASE (HUMAN RECOMBINANT)
     Indication: Immunodeficiency
     Dosage: UNK

REACTIONS (12)
  - Syncope [Recovered/Resolved]
  - Loss of consciousness [Unknown]
  - Injection site pain [Unknown]
  - Procedural anxiety [Unknown]
  - Crying [Unknown]
  - Hyperventilation [Unknown]
  - Bradycardia [Unknown]
  - Hypotension [Unknown]
  - Bradypnoea [Unknown]
  - Oxygen saturation decreased [Unknown]
  - Dizziness [Recovered/Resolved]
  - Anxiety [Recovered/Resolved]

NARRATIVE: CASE EVENT DATE: 20251104
